FAERS Safety Report 20398307 (Version 2)
Quarter: 2022Q1

REPORT INFORMATION
  Report Type: Spontaneous
  Country: US (occurrence: US)
  Receive Date: 20220131
  Receipt Date: 20220201
  Transmission Date: 20220424
  Serious: No
  Sender: FDA-Public Use
  Company Number: US-ABBVIE-21K-163-3905227-00

PATIENT
  Age: 23 Year
  Sex: Male
  Weight: 94.432 kg

DRUGS (6)
  1. HUMIRA [Suspect]
     Active Substance: ADALIMUMAB
     Indication: Crohn^s disease
     Route: 058
     Dates: start: 2015, end: 2020
  2. HUMIRA [Suspect]
     Active Substance: ADALIMUMAB
     Route: 058
     Dates: start: 2020
  3. FLOVENT [Concomitant]
     Active Substance: FLUTICASONE PROPIONATE
     Indication: Gastrooesophageal reflux disease
  4. CALCIUM [Concomitant]
     Active Substance: CALCIUM
     Indication: Supplementation therapy
  5. COVID-19 VACCINE [Concomitant]
     Indication: COVID-19 immunisation
     Dosage: MODERNA
     Route: 030
     Dates: start: 2021, end: 2021
  6. COVID-19 VACCINE [Concomitant]
     Dosage: MODERNA
     Route: 030
     Dates: start: 20210506, end: 20210506

REACTIONS (3)
  - Injection site haemorrhage [Recovered/Resolved]
  - Incorrect dose administered [Unknown]
  - Wrong technique in product usage process [Unknown]

NARRATIVE: CASE EVENT DATE: 20210512
